FAERS Safety Report 4521918-5 (Version None)
Quarter: 2004Q4

REPORT INFORMATION
  Report Type: 
  Country: None (occurrence: None)
  Receive Date: 20041207
  Receipt Date: 20041207
  Transmission Date: 20050328
  Serious: Yes (Other)
  Sender: FDA-Public Use
  Company Number: None

PATIENT
  Age: 51 Year
  Sex: Female
  Weight: 71.6683 kg

DRUGS (3)
  1. CLONIDINE [Suspect]
     Indication: HOT FLUSH
     Dosage: SEE SECTION B5
  2. CLONIDINE [Suspect]
     Indication: MENOPAUSE
     Dosage: SEE SECTION B5
  3. PROTONIX [Concomitant]

REACTIONS (7)
  - BASAL CELL CARCINOMA [None]
  - BURNING SENSATION [None]
  - CONDITION AGGRAVATED [None]
  - DERMATITIS EXFOLIATIVE [None]
  - DYSURIA [None]
  - MUCOUS MEMBRANE DISORDER [None]
  - SKIN CANCER [None]
